FAERS Safety Report 4664786-3 (Version None)
Quarter: 2005Q2

REPORT INFORMATION
  Report Type: 
  Country: None (occurrence: None)
  Receive Date: 20050517
  Receipt Date: 20050517
  Transmission Date: 20051028
  Serious: Yes (Hospitalization)
  Sender: FDA-Public Use
  Company Number: None

PATIENT
  Age: 40 Year
  Sex: Male
  Weight: 76.1136 kg

DRUGS (1)
  1. CLARITHROMYCIN [Suspect]
     Indication: INFLUENZA LIKE ILLNESS
     Dosage: 500MG PO Q12H
     Route: 048
     Dates: start: 20050217, end: 20050220

REACTIONS (2)
  - HEPATITIS ACUTE [None]
  - HEPATITIS INFECTIOUS MONONUCLEOSIS [None]
